FAERS Safety Report 4718182-0 (Version None)
Quarter: 2005Q3

REPORT INFORMATION
  Report Type: 
  Country: None (occurrence: None)
  Receive Date: 20050720
  Receipt Date: 20050620
  Transmission Date: 20060218
  Serious: Yes (Other)
  Sender: FDA-Public Use
  Company Number: JP-ROCHE-408247

PATIENT
  Age: 64 Year
  Sex: Male

DRUGS (7)
  1. HORIZON [Suspect]
     Indication: SEDATION
     Route: 042
  2. NICARDIPINE HCL [Suspect]
     Route: 042
  3. SOSEGON [Suspect]
     Indication: SEDATION
     Route: 042
  4. LIDOCAINE [Suspect]
     Indication: ANAESTHESIA
     Route: 042
  5. NASAL OXYGEN [Concomitant]
     Route: 050
  6. ANTIHYPERTENSIVE [Concomitant]
     Indication: HYPERTENSION
     Route: 048
  7. ANTIDIABETICS [Concomitant]
     Indication: DIABETES MELLITUS
     Route: 048

REACTIONS (1)
  - ATRIAL FIBRILLATION [None]
